FAERS Safety Report 10426469 (Version 2)
Quarter: 2014Q3

REPORT INFORMATION
  Report Type: Report from Study
  Country: JP (occurrence: JP)
  Receive Date: 20140903
  Receipt Date: 20140903
  Transmission Date: 20150326
  Serious: Yes (Other)
  Sender: FDA-Public Use
  Company Number: JP-ROCHE-1442858

PATIENT

DRUGS (7)
  1. OXALIPLATIN. [Suspect]
     Active Substance: OXALIPLATIN
     Indication: COLORECTAL CANCER METASTATIC
     Dosage: 85 MG/M2 OXALIPLATIN ON DAY 1 IN THE PATIENTS TREATED WITH MFOLFOX AND 130 MG/M2 OXALIPLATIN ON DAY
     Route: 065
  2. CAPECITABINE [Suspect]
     Active Substance: CAPECITABINE
     Indication: COLORECTAL CANCER METASTATIC
     Dosage: 1,600 (GREATER THAN EQUAL TO 65 YEARS) OR 2,000 MG/M2 (LESS THAN 65 YEARS) ON DAYS 1-15,
     Route: 048
  3. IRINOTECAN [Suspect]
     Active Substance: IRINOTECAN
     Indication: COLORECTAL CANCER METASTATIC
     Dosage: 200 MG/M2 ON DAY 1 IN PATIENTS AGED }/=65 YEARS OR 2,000 MG/M2 IN PATIENTS AGED {65 YEARS ON DAYS 1-
     Route: 065
  4. FLUOROURACIL. [Suspect]
     Active Substance: FLUOROURACIL
     Indication: COLORECTAL CANCER METASTATIC
     Route: 065
  5. BEVACIZUMAB [Suspect]
     Active Substance: BEVACIZUMAB
     Indication: COLORECTAL CANCER METASTATIC
     Dosage: ON DAY 1 AND EVERY 21 DAYS
     Route: 065
  6. FOLINIC ACID [Suspect]
     Active Substance: LEUCOVORIN
     Indication: COLORECTAL CANCER METASTATIC
     Route: 065
  7. FLUOROURACIL. [Suspect]
     Active Substance: FLUOROURACIL
     Dosage: A 46-H CONTINUOUS INFUSION ON DAYS 1 AND 2
     Route: 065

REACTIONS (14)
  - Diarrhoea [Unknown]
  - Decreased appetite [Unknown]
  - Nausea [Unknown]
  - Hypertension [Unknown]
  - Leukopenia [Unknown]
  - Alopecia [Unknown]
  - Vomiting [Unknown]
  - Neuropathy peripheral [Unknown]
  - Neutropenia [Unknown]
  - Anaemia [Unknown]
  - Thrombocytopenia [Unknown]
  - Fatigue [Unknown]
  - Palmar-plantar erythrodysaesthesia syndrome [Unknown]
  - Stomatitis [Unknown]
